FAERS Safety Report 8962702 (Version 1)
Quarter: 2012Q4

REPORT INFORMATION
  Report Type: Spontaneous
  Country: GB (occurrence: None)
  Receive Date: 20121206
  Receipt Date: 20121206
  Transmission Date: 20130627
  Serious: Yes (Other)
  Sender: FDA-Public Use
  Company Number: GB-BANPHARM-2012-0386

PATIENT
  Age: 70 Year
  Sex: Female

DRUGS (8)
  1. IBUPROFEN [Suspect]
  2. LOPERAMIDE [Suspect]
     Indication: BOWEL DYSFUNCTION
  3. ATORVASTATIN [Suspect]
  4. CARBAMAZEPINE [Suspect]
  5. GLYCERYL TRINITRATE [Suspect]
     Route: 060
  6. LANSOPRAZOLE [Suspect]
  7. METFORMIN [Suspect]
  8. ISOSORBIDE MONONITRATE [Suspect]

REACTIONS (1)
  - Colitis microscopic [None]
